FAERS Safety Report 10069205 (Version 2)
Quarter: 2014Q2

REPORT INFORMATION
  Report Type: Spontaneous
  Country: US (occurrence: US)
  Receive Date: 20140409
  Receipt Date: 20140409
  Transmission Date: 20141212
  Serious: No
  Sender: FDA-Public Use
  Company Number: US-ASTELLAS-2009US002867

PATIENT
  Age: 54 Year
  Sex: Male

DRUGS (1)
  1. PROTOPIC [Suspect]
     Indication: ECZEMA
     Dosage: 0.3 %, TOTAL DOSE
     Route: 061
     Dates: start: 200907

REACTIONS (1)
  - Acne [Unknown]
